FAERS Safety Report 8808822 (Version 2)
Quarter: 2012Q4

REPORT INFORMATION
  Report Type: Report from Study
  Country: FR (occurrence: FR)
  Receive Date: 20120926
  Receipt Date: 20121004
  Transmission Date: 20130627
  Serious: Yes (Other)
  Sender: FDA-Public Use
  Company Number: FR-PFIZER INC-2012144516

PATIENT
  Age: 87 Year
  Sex: Female

DRUGS (2)
  1. CRIZOTINIB [Suspect]
     Indication: BRONCHIAL CARCINOMA
     Dosage: 250 mg, 2x/day
     Route: 048
     Dates: start: 20120503, end: 20120613
  2. CRIZOTINIB [Suspect]
     Indication: NON-SMALL CELL LUNG CANCER

REACTIONS (7)
  - Hepatocellular injury [Recovered/Resolved with Sequelae]
  - Transaminases increased [Unknown]
  - Oedema peripheral [Unknown]
  - Asthenia [Unknown]
  - Photopsia [Unknown]
  - Hypotension [Unknown]
  - Blood creatinine increased [Unknown]
